FAERS Safety Report 8882146 (Version 1)
Quarter: 2012Q4

REPORT INFORMATION
  Report Type: 
  Country: DE (occurrence: DE)
  Receive Date: 20121102
  Receipt Date: 20121102
  Transmission Date: 20130627
  Serious: Yes (Life-Threatening, Other)
  Sender: FDA-Public Use
  Company Number: DE-TEVA-366211GER

PATIENT
  Age: 42 Year
  Sex: Male
  Weight: 81 kg

DRUGS (2)
  1. SERTRALIN [Suspect]
     Indication: DEPRESSION
     Dosage: 50 Milligram Daily;
     Route: 048
     Dates: end: 2012
  2. SERTRALIN [Suspect]
     Dosage: 100 Milligram Daily;
     Route: 048
     Dates: start: 2012

REACTIONS (5)
  - Cardiac arrest [Recovered/Resolved]
  - Arrhythmia [Unknown]
  - Ventricular tachycardia [Unknown]
  - Dizziness [Unknown]
  - Paraesthesia [Unknown]
